FAERS Safety Report 8050650-9 (Version None)
Quarter: 2012Q1

REPORT INFORMATION
  Report Type: 
  Country: None (occurrence: None)
  Receive Date: 20120117
  Receipt Date: 20120112
  Transmission Date: 20120608
  Serious: Yes (Hospitalization, Other)
  Sender: FDA-Public Use
  Company Number: US-PFIZER INC-K201000247

PATIENT
  Sex: Male
  Weight: 56.689 kg

DRUGS (13)
  1. LYRICA [Suspect]
     Dosage: 75 MG, 2X/DAY
  2. VALIUM [Suspect]
     Dosage: UNK
     Dates: end: 20090507
  3. VICODIN [Concomitant]
     Dosage: UNK
     Dates: end: 20090507
  4. FLEXERIL [Suspect]
     Dosage: UNK
     Dates: start: 20090601, end: 20090601
  5. AVONEX [Suspect]
     Indication: MULTIPLE SCLEROSIS
     Dosage: UNK
     Route: 030
     Dates: start: 19990408
  6. VALIUM [Suspect]
     Dosage: UNK
     Dates: start: 20090601, end: 20090601
  7. DILAUDID [Suspect]
     Dosage: UNK
     Dates: start: 20090601, end: 20090601
  8. AVONEX [Suspect]
     Dosage: UNK
     Dates: end: 20090409
  9. SKELAXIN [Suspect]
     Dosage: UNK
     Dates: end: 20090507
  10. PERCOCET [Suspect]
     Dosage: UNK
     Dates: start: 20090601, end: 20090601
  11. LYRICA [Suspect]
     Indication: SCIATICA
     Dosage: 75 MG, 1X/DAY
     Dates: start: 20090507, end: 20090601
  12. SKELAXIN [Suspect]
     Dosage: UNK
     Dates: start: 20090601, end: 20090601
  13. AVONEX [Suspect]
     Dosage: UNK
     Dates: end: 20090409

REACTIONS (12)
  - INTERVERTEBRAL DISC PROTRUSION [None]
  - BURNING SENSATION [None]
  - SLEEP TALKING [None]
  - BACK DISORDER [None]
  - MULTIPLE SCLEROSIS RELAPSE [None]
  - SLEEP DISORDER [None]
  - DEAFNESS [None]
  - APNOEIC ATTACK [None]
  - WEIGHT DECREASED [None]
  - COMA [None]
  - INSOMNIA [None]
  - DIZZINESS [None]
